FAERS Safety Report 5631820-3 (Version None)
Quarter: 2008Q1

REPORT INFORMATION
  Report Type: 
  Country: None (occurrence: None)
  Receive Date: 20080220
  Receipt Date: 20080211
  Transmission Date: 20080703
  Serious: No
  Sender: FDA-Public Use
  Company Number: PHHO2005CH03583

PATIENT
  Age: 68 Year
  Sex: Female
  Weight: 68 kg

DRUGS (2)
  1. OCULOTECT [Concomitant]
     Dosage: UNK, UNK
     Dates: start: 20010430
  2. TAMOXIFEN CITRATE [Suspect]
     Indication: BREAST CANCER
     Dosage: UNK, UNK
     Route: 048
     Dates: start: 20011004

REACTIONS (3)
  - CONJUNCTIVITIS [None]
  - DRY EYE [None]
  - LACRIMATION INCREASED [None]
